FAERS Safety Report 6197410-1 (Version None)
Quarter: 2009Q2

REPORT INFORMATION
  Report Type: 
  Country: None (occurrence: None)
  Receive Date: 20090521
  Receipt Date: 20090513
  Transmission Date: 20091009
  Serious: Yes (Disabling)
  Sender: FDA-Public Use
  Company Number: PHEH2009US04830

PATIENT
  Sex: Female

DRUGS (1)
  1. ZOMETA [Suspect]
     Dosage: ONCE/YEAR INFUSION
     Dates: start: 20080101

REACTIONS (8)
  - ARTHRALGIA [None]
  - BACK PAIN [None]
  - BONE PAIN [None]
  - FATIGUE [None]
  - INFLUENZA [None]
  - JOINT CREPITATION [None]
  - MUSCLE SPASMS [None]
  - MYALGIA [None]
